FAERS Safety Report 10007992 (Version 2)
Quarter: 2014Q2

REPORT INFORMATION
  Report Type: Spontaneous
  Country: US (occurrence: US)
  Receive Date: 20140313
  Receipt Date: 20140423
  Transmission Date: 20141212
  Serious: Yes (Other)
  Sender: FDA-Public Use
  Company Number: US-PFIZER INC-2014072479

PATIENT
  Age: 78 Year
  Sex: Female

DRUGS (6)
  1. LYRICA [Suspect]
     Indication: FATIGUE
     Dosage: 75 MG (1 CAPSULE), 2X/DAY
     Route: 048
  2. ASA [Concomitant]
     Dosage: 81 MG, UNK
  3. ATENOLOL [Concomitant]
     Dosage: 50 MG, UNK
  4. LOVASTATIN [Concomitant]
     Dosage: 40, UNK
  5. PREVACID [Concomitant]
     Dosage: 30, UNK
  6. TRAZODONE [Concomitant]
     Dosage: 50, UNK

REACTIONS (1)
  - Arthropathy [Unknown]
